FAERS Safety Report 7749182-4 (Version None)
Quarter: 2011Q3

REPORT INFORMATION
  Report Type: 
  Country: None (occurrence: None)
  Receive Date: 20110908
  Receipt Date: 20110825
  Transmission Date: 20111222
  Serious: Yes (Life-Threatening)
  Sender: FDA-Public Use
  Company Number: 2011SP040258

PATIENT
  Age: 36 Year
  Sex: Male
  Weight: 85 kg

DRUGS (3)
  1. ACETAMINOPHEN [Concomitant]
  2. ASPEGIC 1000 (LYSINE ACETYLSALICYLATE) [Concomitant]
  3. LORATADINE AND PSEUDOEPHEDRINE SULFATE [Suspect]
     Indication: NASOPHARYNGITIS
     Dosage: 1 DF;BID;PO
     Route: 048
     Dates: start: 20110725, end: 20110726

REACTIONS (2)
  - HEART RATE ABNORMAL [None]
  - PRODUCT QUALITY ISSUE [None]
